FAERS Safety Report 8621929-4 (Version None)
Quarter: 2012Q3

REPORT INFORMATION
  Report Type: 
  Country: None (occurrence: None)
  Receive Date: 20120822
  Receipt Date: 20120822
  Transmission Date: 20120928
  Serious: Yes (Other)
  Sender: FDA-Public Use
  Company Number: None

PATIENT
  Age: 25 Year
  Sex: Male
  Weight: 70.3075 kg

DRUGS (1)
  1. LEVOFLOXACIN [Suspect]
     Indication: SINUSITIS
     Dosage: 750MG 1/DAY FOR 10 DAYS PO
     Route: 048
     Dates: start: 20120717, end: 20120727

REACTIONS (5)
  - MUSCULOSKELETAL PAIN [None]
  - ARTHRALGIA [None]
  - TENDON PAIN [None]
  - LIGAMENT SPRAIN [None]
  - PRODUCT QUALITY ISSUE [None]
